FAERS Safety Report 4789726-8 (Version None)
Quarter: 2005Q4

REPORT INFORMATION
  Report Type: 
  Country: None (occurrence: None)
  Receive Date: 20051006
  Receipt Date: 20050923
  Transmission Date: 20060501
  Serious: Yes (Hospitalization)
  Sender: FDA-Public Use
  Company Number: DE-BOEHRINGER INGELHEIM PHARMACEUTICALS, INC.-2005-DE-03927DE

PATIENT
  Sex: Male

DRUGS (1)
  1. ALNA [Suspect]
     Route: 048

REACTIONS (3)
  - HALLUCINATION [None]
  - HALLUCINATION, VISUAL [None]
  - RESTLESSNESS [None]
